FAERS Safety Report 19214879 (Version 1)
Quarter: 2021Q2

REPORT INFORMATION
  Report Type: Spontaneous
  Country: PT (occurrence: PT)
  Receive Date: 20210504
  Receipt Date: 20210504
  Transmission Date: 20210717
  Serious: Yes (Other)
  Sender: FDA-Public Use
  Company Number: PT-ORGANON-O2103PRT001644

PATIENT
  Age: 31 Year
  Sex: Female

DRUGS (1)
  1. IMPLANON NXT [Suspect]
     Active Substance: ETONOGESTREL
     Dosage: 1 DOSAGE FORM
     Route: 059
     Dates: start: 201709, end: 202103

REACTIONS (7)
  - Complication of device removal [Recovered/Resolved]
  - Unintended pregnancy [Unknown]
  - Complication associated with device [Recovered/Resolved]
  - Abdominal distension [Unknown]
  - Menstruation delayed [Unknown]
  - Incorrect product administration duration [Unknown]
  - Pregnancy with implant contraceptive [Unknown]

NARRATIVE: CASE EVENT DATE: 202009
